FAERS Safety Report 10416925 (Version 2)
Quarter: 2014Q3

REPORT INFORMATION
  Report Type: Spontaneous
  Country: US (occurrence: None)
  Receive Date: 20140826
  Receipt Date: 20140922
  Transmission Date: 20150326
  Serious: Yes (Other)
  Sender: FDA-Public Use
  Company Number: 201406012

PATIENT
  Age: 60 Year
  Sex: Male

DRUGS (21)
  1. AMBIEN [Concomitant]
     Active Substance: ZOLPIDEM TARTRATE
  2. CIPRO [Concomitant]
     Active Substance: CIPROFLOXACIN HYDROCHLORIDE
  3. NEXIUM [Concomitant]
     Active Substance: ESOMEPRAZOLE MAGNESIUM
  4. LASIX [Concomitant]
     Active Substance: FUROSEMIDE
  5. XIAFLEX [Suspect]
     Active Substance: COLLAGENASE CLOSTRIDIUM HISTOLYTICUM
     Indication: PEYRONIE^S DISEASE
     Dosage: INTRALESIONAL
     Dates: start: 20140408, end: 20140408
  6. LIPITOR [Concomitant]
     Active Substance: ATORVASTATIN CALCIUM
  7. GLUCOSAM/MSM/VIT C/MANG/HRB#21 (METHYLSULFONYLMETHANE, ASCORBYL PALMITATE, GLUCOSAMINE SULFATE, ZINGIBER OFFICINALE ROOT, CURCUMA LONGA ROOT) [Concomitant]
  8. CITRACAL (ERGOCALCIFEROL, CALCIUM CITRATE) [Concomitant]
  9. COLACE [Concomitant]
     Active Substance: DOCUSATE SODIUM
  10. FLUTICASONE [Concomitant]
     Active Substance: FLUTICASONE\FLUTICASONE PROPIONATE
  11. PERCOCET (PARACETAMOL, OXYCODONE HYDROCHLORIDE, OXYCODONE TEREPHTHALATE) [Concomitant]
  12. LOTREL (BENAZEPRIL HYDROCHLORIDE, AMLODIPINE BESILATE) [Concomitant]
  13. MULTIVITAMIN (ASCORBIC ACID, PYRIDOXINE HYDROCHLORIDE, BIOTIN, TOCOPHERYL ACETATE, FOLICACID, NICOTINIC ACID, THIAMINE HYDROCHLORIDE, CYANOCOBALAMIN, RIBOFLAVIN, CALCIUM PANTOTHENATE) [Concomitant]
  14. BACITRACIN (NEOMYCIN SULFATE, BACITRACIN) [Concomitant]
  15. OMEGA 3 FISH OIL (FISH OIL) [Concomitant]
     Active Substance: OMEGA-3 FATTY ACIDS
  16. VITAMIN D-3 ORAL (COLECALCIFEROL, CALCIUM CARBONATE) [Concomitant]
  17. TRENTAL (PENTOXYFYLLINE) [Concomitant]
  18. CIALIS [Concomitant]
     Active Substance: TADALAFIL
  19. ROBAXIN (METHOCARBAMOL) [Concomitant]
  20. LOVAZA [Concomitant]
     Active Substance: OMEGA-3-ACID ETHYL ESTERS
  21. SUDAFED (PSEUDOEPHEDRINE HYDROCHLORIDE) [Concomitant]

REACTIONS (3)
  - Fracture of penis [None]
  - Haematoma [None]
  - Injection site pain [None]

NARRATIVE: CASE EVENT DATE: 20140802
